FAERS Safety Report 18148720 (Version 1)
Quarter: 2020Q3

REPORT INFORMATION
  Report Type: Spontaneous
  Country: GR (occurrence: GR)
  Receive Date: 20200814
  Receipt Date: 20200814
  Transmission Date: 20201103
  Serious: Yes (Death, Hospitalization, Other)
  Sender: FDA-Public Use
  Company Number: GR-SUN PHARMACEUTICAL INDUSTRIES LTD-2019R1-217687

PATIENT
  Age: 66 Year
  Sex: Female

DRUGS (3)
  1. CAPECITABINE. [Suspect]
     Active Substance: CAPECITABINE
     Indication: DIHYDROPYRIMIDINE DEHYDROGENASE DEFICIENCY
  2. FILGRASTIM [Suspect]
     Active Substance: FILGRASTIM
     Indication: PANCYTOPENIA
     Dosage: UNK, DAILY
     Route: 065
  3. CAPECITABINE. [Suspect]
     Active Substance: CAPECITABINE
     Indication: COLORECTAL CANCER
     Dosage: 1000 MILLIGRAM/SQ. METER, BID(FROM D1 TO D14, 21?DAY CYCLE)
     Route: 065

REACTIONS (8)
  - Toxicity to various agents [Fatal]
  - Diarrhoea [Unknown]
  - Condition aggravated [Unknown]
  - Treatment failure [Fatal]
  - Mucosal inflammation [Unknown]
  - Cardiomyopathy [Unknown]
  - Neurotoxicity [Unknown]
  - Myelosuppression [Unknown]
